FAERS Safety Report 9486223 (Version 1)
Quarter: 2013Q3

REPORT INFORMATION
  Report Type: Spontaneous
  Country: US (occurrence: None)
  Receive Date: 20130827
  Receipt Date: 20130827
  Transmission Date: 20140515
  Serious: No
  Sender: FDA-Public Use
  Company Number: None

PATIENT
  Age: 57 Year
  Sex: Female
  Weight: 74.84 kg

DRUGS (1)
  1. BESIVANCE [Suspect]
     Indication: EYE DISORDER
     Dosage: 2 ML 1 DROP / 2X DAY TWICE DAILY INTO THE EYE
     Dates: start: 20130812, end: 20130817

REACTIONS (1)
  - Diarrhoea [None]
